FAERS Safety Report 4446153-0 (Version None)
Quarter: 2004Q3

REPORT INFORMATION
  Report Type: 
  Country: None (occurrence: None)
  Receive Date: 20040907
  Receipt Date: 20040901
  Transmission Date: 20050211
  Serious: Yes (Hospitalization)
  Sender: FDA-Public Use
  Company Number: DE-MERCK-0409DEU00010

PATIENT
  Age: 30 Year
  Sex: Female

DRUGS (6)
  1. DIGOXIN [Suspect]
     Indication: CARDIAC FAILURE
     Route: 048
     Dates: end: 20040810
  2. DIGOXIN [Suspect]
     Route: 048
     Dates: start: 20040812
  3. HYDROCHLOROTHIAZIDE [Concomitant]
     Route: 065
  4. LEVOTHYROXINE SODIUM [Concomitant]
     Route: 065
  5. COZAAR [Suspect]
     Indication: CARDIAC FAILURE
     Route: 048
     Dates: start: 20040101, end: 20040811
  6. SPIRONOLACTONE [Concomitant]
     Route: 065

REACTIONS (2)
  - CARDIOACTIVE DRUG LEVEL INCREASED [None]
  - DRUG INTERACTION [None]
